FAERS Safety Report 5436943-X (Version None)
Quarter: 2007Q3

REPORT INFORMATION
  Report Type: 
  Country: None (occurrence: None)
  Receive Date: 20070831
  Receipt Date: 20070822
  Transmission Date: 20080115
  Serious: No
  Sender: FDA-Public Use
  Company Number: JP-ASTRAZENECA-2007AP03475

PATIENT
  Age: 20773 Day
  Sex: Female
  Weight: 56.3 kg

DRUGS (18)
  1. CRESTOR [Suspect]
     Indication: LIPIDS ABNORMAL
     Route: 048
     Dates: start: 20070514, end: 20070606
  2. TAURINE [Concomitant]
     Route: 048
  3. TEGRETOL [Concomitant]
     Route: 048
  4. EPADEL S [Concomitant]
     Indication: LIPIDS ABNORMAL
     Route: 048
     Dates: start: 20051212
  5. PROCYLIN [Concomitant]
     Indication: ARTERIOSCLEROSIS OBLITERANS
     Route: 048
     Dates: start: 20050117
  6. DEPAS [Concomitant]
     Indication: ANXIETY DISORDER
     Route: 048
     Dates: start: 20020819
  7. FAMOTIDINE [Concomitant]
     Indication: GASTRIC ULCER
     Route: 048
     Dates: start: 20020819
  8. SHAKUYAKU-KANZO-TO [Concomitant]
     Indication: MYALGIA
     Route: 048
     Dates: start: 20070514
  9. VOLTAREN [Concomitant]
     Route: 048
  10. FRANDOL S [Concomitant]
     Indication: ANGINA PECTORIS
     Dates: start: 20040202
  11. VOLTAREN [Concomitant]
  12. ADALAT [Concomitant]
     Route: 048
  13. VOLTAREN [Concomitant]
     Route: 048
  14. LIPITOR [Concomitant]
  15. ACTOS [Concomitant]
     Indication: DIABETES MELLITUS
     Route: 048
     Dates: start: 20050613
  16. PREMINENT [Concomitant]
     Indication: HYPERTENSION
     Route: 048
     Dates: start: 20070514, end: 20070806
  17. BASEN OD [Concomitant]
     Indication: DIABETES MELLITUS
     Route: 048
     Dates: start: 20020401
  18. NOVOLIN R [Concomitant]
     Indication: DIABETES MELLITUS
     Route: 058
     Dates: start: 20040107

REACTIONS (2)
  - COLD SWEAT [None]
  - DIZZINESS [None]
